FAERS Safety Report 7464448-3 (Version None)
Quarter: 2011Q2

REPORT INFORMATION
  Report Type: 
  Country: None (occurrence: None)
  Receive Date: 20110509
  Receipt Date: 20110425
  Transmission Date: 20111010
  Serious: Yes (Disabling, Other)
  Sender: FDA-Public Use
  Company Number: JP-JNJFOC-20110303163

PATIENT
  Sex: Female

DRUGS (6)
  1. LOXOMARIN [Concomitant]
     Indication: OROPHARYNGEAL PAIN
     Dosage: AS NEEDED, TEN TIMES
     Route: 048
  2. LOXOMARIN [Concomitant]
     Dosage: AS NEEDED, SIX TIMES
     Route: 048
  3. LOXOMARIN [Concomitant]
     Route: 048
  4. LEVOFLOXACIN [Suspect]
     Indication: TONSILLITIS STREPTOCOCCAL
     Route: 048
  5. CLARITIN REDITABS [Concomitant]
     Indication: RHINITIS ALLERGIC
     Route: 048
  6. KIPRES [Concomitant]
     Indication: RHINITIS ALLERGIC
     Route: 048

REACTIONS (6)
  - ARTHRITIS [None]
  - PAIN IN EXTREMITY [None]
  - POLYARTHRITIS [None]
  - TENDON DISORDER [None]
  - INFECTION [None]
  - GASTROENTERITIS [None]
